FAERS Safety Report 4962910-6 (Version None)
Quarter: 2006Q1

REPORT INFORMATION
  Report Type: 
  Country: None (occurrence: None)
  Receive Date: 20060331
  Receipt Date: 20060327
  Transmission Date: 20060701
  Serious: Yes (Other)
  Sender: FDA-Public Use
  Company Number: GBWYE508327MAR06

PATIENT
  Age: 65 Year
  Sex: Male

DRUGS (1)
  1. IBUPROFEN [Suspect]
     Indication: BACK PAIN
     Dosage: 400 MG 3X PER 1 DAY ORAL
     Route: 048
     Dates: start: 20060227, end: 20060305

REACTIONS (4)
  - DIZZINESS [None]
  - HAEMATEMESIS [None]
  - HYPERHIDROSIS [None]
  - NAUSEA [None]
